FAERS Safety Report 11803268 (Version 2)
Quarter: 2016Q2

REPORT INFORMATION
  Report Type: Report from Study
  Country: US (occurrence: US)
  Receive Date: 20151204
  Receipt Date: 20160624
  Transmission Date: 20160815
  Serious: No
  Sender: FDA-Public Use
  Company Number: PHEH2015US025260

PATIENT
  Age: 33 Year
  Sex: Female
  Weight: 104.31 kg

DRUGS (3)
  1. GILENYA [Suspect]
     Active Substance: FINGOLIMOD HYDROCHLORIDE
     Indication: MULTIPLE SCLEROSIS
     Dosage: 0.5 MG, QD
     Route: 048
     Dates: start: 20150504
  2. VITAMIN D [Concomitant]
     Active Substance: CHOLECALCIFEROL
     Indication: PRODUCT USED FOR UNKNOWN INDICATION
     Dosage: INCREASED BY 1000 UNITS
     Route: 065
  3. OXYBUTYNIN [Concomitant]
     Active Substance: OXYBUTYNIN
     Indication: PRODUCT USED FOR UNKNOWN INDICATION
     Dosage: 10 MG, UNK
     Route: 065

REACTIONS (17)
  - Liver function test increased [Unknown]
  - Visual acuity reduced [Unknown]
  - Gait disturbance [Unknown]
  - Fatigue [Unknown]
  - Decreased appetite [Unknown]
  - Movement disorder [Unknown]
  - Weight increased [Unknown]
  - Sensory loss [Unknown]
  - Dizziness [Unknown]
  - Memory impairment [Unknown]
  - Hyperlipidaemia [Unknown]
  - Hoffmann^s sign [Unknown]
  - Headache [Unknown]
  - Pain in extremity [Not Recovered/Not Resolved]
  - Alopecia [Not Recovered/Not Resolved]
  - Limb discomfort [Unknown]
  - Pain [Unknown]

NARRATIVE: CASE EVENT DATE: 201509
